FAERS Safety Report 6384418-6 (Version None)
Quarter: 2009Q4

REPORT INFORMATION
  Report Type: 
  Country: None (occurrence: None)
  Receive Date: 20091001
  Receipt Date: 20090918
  Transmission Date: 20100525
  Serious: Yes (Other)
  Sender: FDA-Public Use
  Company Number: BR-PFIZER INC-2009271263

PATIENT
  Age: 39 Year

DRUGS (2)
  1. FRONTAL [Suspect]
     Indication: INSOMNIA
     Dosage: 1 MG, 1X/DAY
     Route: 048
     Dates: start: 20010901
  2. RIVOTRIL [Concomitant]
     Dosage: UNK
     Dates: start: 20010101

REACTIONS (1)
  - SUICIDAL IDEATION [None]
